FAERS Safety Report 19149056 (Version 1)
Quarter: 2021Q2

REPORT INFORMATION
  Report Type: Spontaneous
  Country: FR (occurrence: FR)
  Receive Date: 20210416
  Receipt Date: 20210416
  Transmission Date: 20210717
  Serious: Yes (Hospitalization)
  Sender: FDA-Public Use
  Company Number: NVSC2021FR083318

PATIENT
  Age: 48 Year
  Sex: Female
  Weight: 52 kg

DRUGS (3)
  1. CERNEVIT [Concomitant]
     Active Substance: VITAMINS
     Indication: HYPOVITAMINOSIS
     Dosage: 1 DF, QD
     Route: 042
     Dates: start: 20201224, end: 20201224
  2. ZOPHREN 4 MG, LYOPHILISAT ORAL (ONDANSETRON) [Suspect]
     Active Substance: ONDANSETRON
     Indication: NAUSEA
     Dosage: 8 MG, QD
     Route: 048
     Dates: start: 20201219, end: 20210105
  3. FERINJECT [Concomitant]
     Active Substance: FERRIC CARBOXYMALTOSE
     Indication: MINERAL SUPPLEMENTATION
     Dosage: 1 G, QD
     Route: 042
     Dates: start: 20201224, end: 20201224

REACTIONS (1)
  - Dermatitis [Recovering/Resolving]

NARRATIVE: CASE EVENT DATE: 20210105
